FAERS Safety Report 4931992-X (Version None)
Quarter: 2006Q1

REPORT INFORMATION
  Report Type: 
  Country: None (occurrence: None)
  Receive Date: 20060303
  Receipt Date: 20051215
  Transmission Date: 20060701
  Serious: Yes (Life-Threatening, Disabling)
  Sender: FDA-Public Use
  Company Number: JP-JPN-A20053095

PATIENT
  Age: 67 Year
  Sex: Female
  Weight: 60 kg

DRUGS (4)
  1. PAXIL [Suspect]
     Indication: DEPRESSION
     Dosage: 10MG TWICE PER DAY
     Route: 048
     Dates: start: 20051104, end: 20051104
  2. GASMOTIN [Concomitant]
     Indication: VOMITING
     Dosage: 5MG THREE TIMES PER DAY
     Route: 048
     Dates: start: 20051105, end: 20051105
  3. BREDININ [Concomitant]
     Indication: NEPHROTIC SYNDROME
     Dosage: 50MG TWICE PER DAY
     Route: 048
  4. MEVALOTIN [Concomitant]
     Dosage: 10MG PER DAY
     Route: 048

REACTIONS (12)
  - BLOOD PRESSURE DECREASED [None]
  - DEPRESSED LEVEL OF CONSCIOUSNESS [None]
  - HYPERHIDROSIS [None]
  - HYPOGLYCAEMIA [None]
  - HYPOGLYCAEMIC ENCEPHALOPATHY [None]
  - MUSCULOSKELETAL STIFFNESS [None]
  - NEUROLEPTIC MALIGNANT SYNDROME [None]
  - PYREXIA [None]
  - RESPIRATORY DISORDER [None]
  - RHABDOMYOLYSIS [None]
  - SEROTONIN SYNDROME [None]
  - VOMITING [None]
